FAERS Safety Report 11826162 (Version 1)
Quarter: 2015Q4

REPORT INFORMATION
  Report Type: Spontaneous
  Country: US (occurrence: US)
  Receive Date: 20151211
  Receipt Date: 20151211
  Transmission Date: 20160305
  Serious: No
  Sender: FDA-Public Use
  Company Number: US-ENDO PHARMACEUTICALS INC.-2015-003441

PATIENT
  Sex: Male
  Weight: 66.28 kg

DRUGS (3)
  1. HYDROCODONE BITARTRATE AND ACETAMINOPHEN [Suspect]
     Active Substance: ACETAMINOPHEN\HYDROCODONE BITARTRATE
     Indication: PAIN
     Dosage: EIGHT 10/325MG TABLETS A DAY AS NEEDED
     Route: 048
     Dates: start: 20030812
  2. HYDROCODONE BITARTRATE AND ACETAMINOPHEN [Suspect]
     Active Substance: ACETAMINOPHEN\HYDROCODONE BITARTRATE
     Dosage: TWELVE 10/325MG TABLETS A DAY AS NEEDED
     Route: 048
     Dates: start: 201509
  3. OXYCONTIN [Concomitant]
     Active Substance: OXYCODONE HYDROCHLORIDE
     Indication: PAIN

REACTIONS (6)
  - Drug ineffective [Unknown]
  - Malaise [Unknown]
  - Product taste abnormal [Unknown]
  - Product colour issue [Unknown]
  - Product physical issue [Unknown]
  - Wrong technique in product usage process [Not Recovered/Not Resolved]

NARRATIVE: CASE EVENT DATE: 2014
